FAERS Safety Report 4774199-1 (Version None)
Quarter: 2005Q3

REPORT INFORMATION
  Report Type: 
  Country: None (occurrence: None)
  Receive Date: 20050914
  Receipt Date: 20050401
  Transmission Date: 20060218
  Serious: Yes (Other)
  Sender: FDA-Public Use
  Company Number: 163-20785-05040189

PATIENT
  Sex: Female

DRUGS (1)
  1. THALOMID [Suspect]
     Indication: LEIOMYOSARCOMA
     Dosage: 200MG, INCREASING BY 200MG INCREMENTS Q2WKS, TO A MAX OF 1000MG/DAY, QHS, ORAL
     Route: 048
     Dates: start: 20011009

REACTIONS (2)
  - ABDOMINAL PAIN [None]
  - DYSPNOEA [None]
